FAERS Safety Report 4835574-X (Version None)
Quarter: 2005Q4

REPORT INFORMATION
  Report Type: 
  Country: None (occurrence: None)
  Receive Date: 20051121
  Receipt Date: 20051109
  Transmission Date: 20060501
  Serious: Yes (Other)
  Sender: FDA-Public Use
  Company Number: CHPA2005US06264

PATIENT
  Age: 79 Year
  Sex: Male
  Weight: 68.9 kg

DRUGS (6)
  1. TRANSDERM SCOP [Suspect]
     Indication: THROAT IRRITATION
     Dosage: 1.5 MG Q72H TRANSDERMAL
     Route: 062
     Dates: start: 20050801
  2. SOTALOL HCL [Concomitant]
  3. DIGOXIN [Concomitant]
  4. PLAVIX [Concomitant]
  5. ARICEPT [Concomitant]
  6. LORAZEPAM [Concomitant]

REACTIONS (4)
  - DRUG DEPENDENCE [None]
  - INAPPROPRIATE SCHEDULE OF DRUG ADMINISTRATION [None]
  - INCREASED UPPER AIRWAY SECRETION [None]
  - PROCEDURAL COMPLICATION [None]
